FAERS Safety Report 4991725-8 (Version None)
Quarter: 2006Q2

REPORT INFORMATION
  Report Type: 
  Country: None (occurrence: None)
  Receive Date: 20060504
  Receipt Date: 20060503
  Transmission Date: 20061013
  Serious: Yes (Hospitalization)
  Sender: FDA-Public Use
  Company Number: FR-GLAXOSMITHKLINE-B0422187A

PATIENT
  Age: 40 Year
  Sex: Female

DRUGS (1)
  1. CLAMOXYL [Suspect]
     Indication: BRONCHITIS
     Dosage: 1G SINGLE DOSE
     Route: 048
     Dates: start: 20050915

REACTIONS (9)
  - ANAPHYLACTIC REACTION [None]
  - DIZZINESS [None]
  - DYSPNOEA [None]
  - GENERALISED OEDEMA [None]
  - PAINFUL RESPIRATION [None]
  - RASH [None]
  - SENSE OF OPPRESSION [None]
  - TACHYCARDIA [None]
  - VOMITING [None]
